FAERS Safety Report 10462927 (Version 1)
Quarter: 2014Q3

REPORT INFORMATION
  Report Type: Spontaneous
  Country: DE (occurrence: DE)
  Receive Date: 20140918
  Receipt Date: 20140918
  Transmission Date: 20150326
  Serious: Yes (Death)
  Sender: FDA-Public Use
  Company Number: DE-ASTRAZENECA-2014SE69260

PATIENT
  Sex: Female

DRUGS (9)
  1. ZOPICLONE [Interacting]
     Active Substance: ZOPICLONE
     Route: 065
  2. AGOMELATIN [Interacting]
     Active Substance: AGOMELATINE
     Route: 065
  3. OMEPRAZOL [Suspect]
     Active Substance: OMEPRAZOLE
     Route: 048
  4. ATOSIL [Interacting]
     Active Substance: PROMETHAZINE HYDROCHLORIDE
     Route: 065
  5. OLANZAPINE. [Interacting]
     Active Substance: OLANZAPINE
     Route: 065
  6. DOXEPIN [Interacting]
     Active Substance: DOXEPIN
     Route: 065
  7. L-THYROXIN [Interacting]
     Active Substance: LEVOTHYROXINE SODIUM
     Route: 065
  8. LYRICA [Interacting]
     Active Substance: PREGABALIN
     Route: 065
  9. SERTRALINE [Interacting]
     Active Substance: SERTRALINE HYDROCHLORIDE
     Route: 065

REACTIONS (2)
  - Completed suicide [Fatal]
  - Drug interaction [Fatal]

NARRATIVE: CASE EVENT DATE: 20130516
